FAERS Safety Report 12283370 (Version 1)
Quarter: 2016Q2

REPORT INFORMATION
  Report Type: Spontaneous
  Country: CZ (occurrence: CZ)
  Receive Date: 20160419
  Receipt Date: 20160419
  Transmission Date: 20160815
  Serious: Yes (Life-Threatening, Hospitalization, Other)
  Sender: FDA-Public Use
  Company Number: PHHY2016CZ050392

PATIENT
  Age: 47 Year
  Sex: Female
  Weight: 60 kg

DRUGS (3)
  1. PARALEN                            /00391201/ [Concomitant]
     Indication: PRODUCT USED FOR UNKNOWN INDICATION
     Route: 048
     Dates: start: 20160331, end: 20160331
  2. OSPEN [Suspect]
     Active Substance: PENICILLIN V
     Indication: PULPITIS DENTAL
     Route: 048
     Dates: start: 20160324, end: 20160401
  3. IBALGIN [Concomitant]
     Active Substance: IBUPROFEN
     Indication: PRODUCT USED FOR UNKNOWN INDICATION
     Route: 048
     Dates: start: 20160402, end: 20160402

REACTIONS (6)
  - Urticaria [Unknown]
  - Lip swelling [Recovering/Resolving]
  - Oedema peripheral [Recovering/Resolving]
  - Ear congestion [Recovering/Resolving]
  - Eye swelling [Recovering/Resolving]
  - Drug eruption [Recovering/Resolving]

NARRATIVE: CASE EVENT DATE: 20160402
